FAERS Safety Report 23976124 (Version 1)
Quarter: 2024Q2

REPORT INFORMATION
  Report Type: Spontaneous
  Country: DE (occurrence: DE)
  Receive Date: 20240614
  Receipt Date: 20240614
  Transmission Date: 20240716
  Serious: Yes (Other)
  Sender: FDA-Public Use
  Company Number: DE-002147023-NVSC2024DE123389

PATIENT

DRUGS (1)
  1. KESIMPTA [Suspect]
     Active Substance: OFATUMUMAB
     Indication: Foetal exposure during pregnancy
     Dosage: UNK
     Route: 064

REACTIONS (6)
  - General physical health deterioration [Unknown]
  - Late metabolic acidosis of newborn [Unknown]
  - Neurological symptom [Unknown]
  - Cardiac contractility decreased [Unknown]
  - Foetal exposure during pregnancy [Unknown]
  - Asthenia [Unknown]

NARRATIVE: CASE EVENT DATE: 20240607
